FAERS Safety Report 4399575-0 (Version None)
Quarter: 2004Q3

REPORT INFORMATION
  Report Type: 
  Country: None (occurrence: None)
  Receive Date: 20040716
  Receipt Date: 20040708
  Transmission Date: 20050211
  Serious: Yes (Death, Other)
  Sender: FDA-Public Use
  Company Number: JP-MERCK-0407USA01016

PATIENT
  Sex: Male

DRUGS (3)
  1. PEPCID [Suspect]
     Route: 042
  2. PEPCID [Concomitant]
     Route: 048
  3. OMEPRAL [Concomitant]
     Route: 042

REACTIONS (2)
  - DEATH [None]
  - PANCYTOPENIA [None]
